FAERS Safety Report 24084493 (Version 6)
Quarter: 2024Q3

REPORT INFORMATION
  Report Type: Report from Study
  Country: CA (occurrence: CA)
  Receive Date: 20240712
  Receipt Date: 20240830
  Transmission Date: 20241016
  Serious: Yes (Hospitalization, Other)
  Sender: GLAXOSMITHKLINE
  Company Number: CA-GLAXOSMITHKLINE-CA2024042608

PATIENT

DRUGS (4)
  1. DOSTARLIMAB [Suspect]
     Active Substance: DOSTARLIMAB
     Indication: Endometrial cancer
     Dosage: UNK (500 MG EVERY 3 WEEKS FOR DOSE 1-6; THEN 1000 MG EVERY 6 WEEKS)
     Dates: start: 20240425
  2. DOSTARLIMAB [Suspect]
     Active Substance: DOSTARLIMAB
     Dosage: UNK (500 MG EVERY 3 WEEKS FOR DOSE 1-6; THEN 1000 MG EVERY 6 WEEKS)
  3. SODIUM CHLORIDE [Suspect]
     Active Substance: SODIUM CHLORIDE
     Indication: Product used for unknown indication
     Dosage: UNK (50ML/HR)
  4. LEVOTHYROXINE [Concomitant]
     Active Substance: LEVOTHYROXINE\LEVOTHYROXINE SODIUM
     Indication: Product used for unknown indication
     Dosage: 200 UG
     Dates: start: 20240801

REACTIONS (15)
  - Diabetic ketoacidosis [Recovered/Resolved]
  - Immunotoxicity [Unknown]
  - Type 1 diabetes mellitus [Unknown]
  - Sensitive skin [Unknown]
  - Skin discolouration [Unknown]
  - Flushing [Unknown]
  - Rash [Unknown]
  - Feeling hot [Unknown]
  - Hyperglycaemia [Not Recovered/Not Resolved]
  - Hypoglycaemia [Unknown]
  - Arthralgia [Not Recovered/Not Resolved]
  - Anxiety [Unknown]
  - Injection site pain [Unknown]
  - Product dose omission issue [Unknown]
  - Inappropriate schedule of product administration [Unknown]

NARRATIVE: CASE EVENT DATE: 20240516
